FAERS Safety Report 14100626 (Version 3)
Quarter: 2017Q4

REPORT INFORMATION
  Report Type: Report from Study
  Country: BR (occurrence: BR)
  Receive Date: 20171017
  Receipt Date: 20171117
  Transmission Date: 20180321
  Serious: Yes (Hospitalization)
  Sender: FDA-Public Use
  Company Number: PHHY2017BR152011

PATIENT
  Sex: Female
  Weight: 75 kg

DRUGS (2)
  1. RIVASTIGMINE. [Suspect]
     Active Substance: RIVASTIGMINE
     Indication: DEMENTIA ALZHEIMER^S TYPE
     Route: 065
  2. EXELON PATCH [Suspect]
     Active Substance: RIVASTIGMINE
     Indication: DEMENTIA ALZHEIMER^S TYPE
     Dosage: 4.6 MG, QD PATCH 5 (CM2)
     Route: 062
     Dates: start: 2014, end: 201707

REACTIONS (18)
  - Abdominal discomfort [Unknown]
  - Agitation [Unknown]
  - Femur fracture [Unknown]
  - Vomiting [Unknown]
  - Laziness [Unknown]
  - Infection [Unknown]
  - Product adhesion issue [Unknown]
  - Wrong technique in product usage process [Unknown]
  - Lack of application site rotation [Unknown]
  - Hypophagia [Unknown]
  - Insomnia [Unknown]
  - Gait disturbance [Unknown]
  - Fall [Unknown]
  - Nervousness [Unknown]
  - Fluid intake reduced [Unknown]
  - Malaise [Unknown]
  - Intestinal congestion [Unknown]
  - Enuresis [Unknown]

NARRATIVE: CASE EVENT DATE: 2014
